FAERS Safety Report 26025925 (Version 3)
Quarter: 2025Q4

REPORT INFORMATION
  Report Type: Report from Study
  Country: BR (occurrence: BR)
  Receive Date: 20251111
  Receipt Date: 20251219
  Transmission Date: 20260117
  Serious: Yes (Other)
  Sender: JOHNSON AND JOHNSON
  Company Number: BR-JNJFOC-20251145784

PATIENT
  Age: 59 Year
  Sex: Male
  Weight: 93 kg

DRUGS (5)
  1. GOLIMUMAB [Suspect]
     Active Substance: GOLIMUMAB
     Indication: Ankylosing spondylitis
     Route: 058
     Dates: start: 202509
  2. GOLIMUMAB [Suspect]
     Active Substance: GOLIMUMAB
  3. GOLIMUMAB [Suspect]
     Active Substance: GOLIMUMAB
  4. SIMPONI [Suspect]
     Active Substance: GOLIMUMAB
     Indication: Ankylosing spondylitis
     Route: 058
  5. SIMPONI [Suspect]
     Active Substance: GOLIMUMAB

REACTIONS (5)
  - Pneumonia [Unknown]
  - Glaucoma [Unknown]
  - Asthma [Unknown]
  - Viral infection [Not Recovered/Not Resolved]
  - Pain [Not Recovered/Not Resolved]

NARRATIVE: CASE EVENT DATE: 20250101
